FAERS Safety Report 23527439 (Version 2)
Quarter: 2024Q3

REPORT INFORMATION
  Report Type: Spontaneous
  Country: US (occurrence: US)
  Receive Date: 20240215
  Receipt Date: 20240701
  Transmission Date: 20241017
  Serious: No
  Sender: PFIZER
  Company Number: US-PFIZER INC-202300318800

PATIENT
  Age: 52 Year
  Sex: Male

DRUGS (1)
  1. OXBRYTA [Suspect]
     Active Substance: VOXELOTOR
     Dosage: 500 MG 3 TABLETS ONCE DAILY
     Route: 048
     Dates: start: 202310

REACTIONS (2)
  - Illness [Not Recovered/Not Resolved]
  - Skin ulcer [Not Recovered/Not Resolved]
